FAERS Safety Report 11283478 (Version 1)
Quarter: 2015Q3

REPORT INFORMATION
  Report Type: Spontaneous
  Country: GB (occurrence: GB)
  Receive Date: 20150720
  Receipt Date: 20150720
  Transmission Date: 20151125
  Serious: Yes (Other)
  Sender: FDA-Public Use
  Company Number: GB-TEVA-577372ACC

PATIENT
  Age: 83 Year
  Sex: Female

DRUGS (4)
  1. METRONIDAZOLE. [Suspect]
     Active Substance: METRONIDAZOLE
     Indication: DIVERTICULITIS
     Dosage: SECOND COURSE COMPLETED
     Dates: start: 20150506
  2. AMOXICILLIN. [Concomitant]
     Active Substance: AMOXICILLIN
     Indication: DIVERTICULITIS
     Dosage: 1500 MILLIGRAM DAILY; COMPLETED COURSE
     Dates: start: 20150420
  3. METRONIDAZOLE. [Suspect]
     Active Substance: METRONIDAZOLE
     Indication: DIVERTICULITIS
     Dosage: 1200 MILLIGRAM DAILY; FIRST COURSE COMPLETED
     Dates: start: 20150420
  4. HYOSCINE BUTYLBROMIDE [Concomitant]
     Active Substance: BUTYLSCOPOLAMINE
     Indication: DIVERTICULITIS
     Dosage: 30 MILLIGRAM DAILY; COURSE COMPLETED
     Dates: start: 20150420

REACTIONS (6)
  - Dysgeusia [Not Recovered/Not Resolved]
  - Tongue coated [Not Recovered/Not Resolved]
  - Glossodynia [Not Recovered/Not Resolved]
  - Tongue discolouration [Not Recovered/Not Resolved]
  - Oral candidiasis [Not Recovered/Not Resolved]
  - Chromaturia [Recovered/Resolved]
